FAERS Safety Report 4969587-4 (Version None)
Quarter: 2006Q1

REPORT INFORMATION
  Report Type: 
  Country: None (occurrence: None)
  Receive Date: 20060127
  Receipt Date: 20050421
  Transmission Date: 20060701
  Serious: Yes (Hospitalization)
  Sender: FDA-Public Use
  Company Number: 05-04-0667

PATIENT
  Age: 60 Year
  Sex: Male

DRUGS (1)
  1. CLOZAPINE [Suspect]
     Indication: SCHIZOPHRENIA
     Dosage: 350-900MG QD, ORAL
     Route: 048
     Dates: start: 20010101

REACTIONS (5)
  - ABDOMINAL PAIN [None]
  - CHEST PAIN [None]
  - DEHYDRATION [None]
  - MENTAL STATUS CHANGES [None]
  - PNEUMONIA [None]
